FAERS Safety Report 7685242-4 (Version None)
Quarter: 2011Q3

REPORT INFORMATION
  Report Type: 
  Country: None (occurrence: None)
  Receive Date: 20110816
  Receipt Date: 20110808
  Transmission Date: 20111222
  Serious: Yes (Other)
  Sender: FDA-Public Use
  Company Number: US-ELI_LILLY_AND_COMPANY-US200910005593

PATIENT
  Sex: Female
  Weight: 122.45 kg

DRUGS (10)
  1. BYETTA [Suspect]
     Dosage: UNK, UNKNOWN
     Route: 065
     Dates: start: 20070207, end: 20081201
  2. PAXIL [Concomitant]
     Indication: DEPRESSION
     Dosage: UNK
     Dates: start: 20080101
  3. NITROGLYCERIN [Concomitant]
     Indication: CHEST PAIN
     Dosage: UNK
  4. CALCIUM CARBONATE [Concomitant]
  5. CRESTOR [Concomitant]
     Indication: LIPIDS
     Dosage: UNK
     Dates: start: 20070101
  6. CITALOPRAM HYDROBROMIDE [Suspect]
     Dosage: UNK
     Dates: start: 20080101
  7. CARVEDILOL [Concomitant]
     Dosage: UNK
     Dates: start: 20070101
  8. METFORMIN HCL [Concomitant]
     Indication: DIABETES MELLITUS
  9. FUROSEMIDE [Concomitant]
     Indication: DIURETIC THERAPY
  10. NITROGLYCERIN [Concomitant]
     Indication: CHEST PAIN
     Dosage: UNK, PRN

REACTIONS (1)
  - PANCREATITIS ACUTE [None]
